FAERS Safety Report 4302982-5 (Version None)
Quarter: 2004Q1

REPORT INFORMATION
  Report Type: 
  Country: None (occurrence: None)
  Receive Date: 20040224
  Receipt Date: 20040223
  Transmission Date: 20041129
  Serious: Yes (Hospitalization)
  Sender: FDA-Public Use
  Company Number: US-GLAXOSMITHKLINE-A0499451A

PATIENT
  Age: 79 Year
  Sex: Female

DRUGS (5)
  1. WELLBUTRIN [Suspect]
     Indication: DEPRESSION
     Dosage: 150MG PER DAY
     Route: 048
     Dates: start: 20040209, end: 20040211
  2. REMERON [Concomitant]
  3. ENALAPRIL [Concomitant]
  4. AMARYL [Concomitant]
  5. GLUCOPHAGE [Concomitant]

REACTIONS (7)
  - HYPERGLYCAEMIA [None]
  - HYPERTENSION [None]
  - ILL-DEFINED DISORDER [None]
  - MARKEDLY REDUCED DIETARY INTAKE [None]
  - ORAL SOFT TISSUE DISORDER [None]
  - SPEECH DISORDER [None]
  - STOMACH DISCOMFORT [None]
